FAERS Safety Report 5241114-6 (Version None)
Quarter: 2007Q1

REPORT INFORMATION
  Report Type: 
  Country: None (occurrence: None)
  Receive Date: 20070214
  Receipt Date: 20070214
  Transmission Date: 20070707
  Serious: Yes (Hospitalization)
  Sender: FDA-Public Use
  Company Number: None

PATIENT
  Age: 89 Year
  Sex: Female
  Weight: 49.8957 kg

DRUGS (1)
  1. PROTONIX [Suspect]
     Dosage: 80MG ONE ADMINISTRATION IV
     Route: 042
     Dates: start: 20060314, end: 20060314

REACTIONS (3)
  - BLOOD PRESSURE SYSTOLIC DECREASED [None]
  - BURNING SENSATION [None]
  - PRURITUS [None]
